FAERS Safety Report 11354062 (Version 1)
Quarter: 2015Q3

REPORT INFORMATION
  Report Type: Spontaneous
  Country: US (occurrence: US)
  Receive Date: 20150807
  Receipt Date: 20150807
  Transmission Date: 20151125
  Serious: No
  Sender: FDA-Public Use
  Company Number: US-JNJFOC-20141010941

PATIENT
  Age: 77 Year
  Sex: Female
  Weight: 43.09 kg

DRUGS (3)
  1. SUDAFED 12 HOUR [Suspect]
     Active Substance: PSEUDOEPHEDRINE HYDROCHLORIDE
     Route: 048
  2. SUDAFED 12 HOUR [Suspect]
     Active Substance: PSEUDOEPHEDRINE HYDROCHLORIDE
     Indication: SINUS CONGESTION
     Route: 048
     Dates: end: 20141012
  3. AMOXICILLIN. [Concomitant]
     Active Substance: AMOXICILLIN
     Indication: SINUSITIS
     Dosage: 875/ DAY
     Route: 065

REACTIONS (1)
  - Abdominal pain upper [Not Recovered/Not Resolved]
